FAERS Safety Report 15075415 (Version 1)
Quarter: 2018Q2

REPORT INFORMATION
  Report Type: Spontaneous
  Country: US (occurrence: US)
  Receive Date: 20180607
  Receipt Date: 20180607
  Transmission Date: 20180711
  Serious: Yes (Hospitalization)
  Sender: FDA-Public Use
  Company Number: None

PATIENT
  Sex: Female

DRUGS (17)
  1. ASPIRIN. [Concomitant]
     Active Substance: ASPIRIN
  2. LISINOPRIL. [Concomitant]
     Active Substance: LISINOPRIL
  3. MULTI-VITAMIN [Concomitant]
     Active Substance: .ALPHA.-TOCOPHEROL ACETATE, DL-\ASCORBIC ACID\CYANOCOBALAMIN\FLUORIDE ION\FOLIC ACID\NIACIN\PYRIDOXINE\RIBOFLAVIN\THIAMINE\VITAMIN A\VITAMIN D
  4. CALCITRIOL. [Concomitant]
     Active Substance: CALCITRIOL
  5. CITALOPRAM [Concomitant]
     Active Substance: CITALOPRAM HYDROBROMIDE
  6. TUMS EX [Concomitant]
     Active Substance: CALCIUM CARBONATE
  7. TYLENOL [Concomitant]
     Active Substance: ACETAMINOPHEN
  8. BISOPROL [Concomitant]
     Active Substance: BISOPROLOL FUMARATE
  9. FUROSEMIDE. [Concomitant]
     Active Substance: FUROSEMIDE
  10. TEARS PURE [Concomitant]
  11. PANTOPRAZOLE [Concomitant]
     Active Substance: PANTOPRAZOLE
  12. IRON 100/C [Concomitant]
  13. PROLIA [Suspect]
     Active Substance: DENOSUMAB
     Indication: SENILE OSTEOPOROSIS
     Dosage: OTHER FREQUENCY:Q 6 MONTHS;?
     Route: 058
     Dates: start: 20161216
  14. AMLODIPINE [Concomitant]
     Active Substance: AMLODIPINE BESYLATE
  15. DULCOLAX NOS [Concomitant]
     Active Substance: BISACODYL OR DOCUSATE SODIUM
  16. ATORVASTATIN [Concomitant]
     Active Substance: ATORVASTATIN
  17. PLAVIX [Concomitant]
     Active Substance: CLOPIDOGREL BISULFATE

REACTIONS (4)
  - Musculoskeletal disorder [None]
  - Arthropathy [None]
  - Liver disorder [None]
  - Cardiac failure congestive [None]
